FAERS Safety Report 16962642 (Version 1)
Quarter: 2019Q4

REPORT INFORMATION
  Report Type: Spontaneous
  Country: FR (occurrence: FR)
  Receive Date: 20191025
  Receipt Date: 20191025
  Transmission Date: 20200122
  Serious: Yes (Hospitalization)
  Sender: FDA-Public Use
  Company Number: FR-OTSUKA-2019_036214

PATIENT
  Age: 26 Year
  Sex: Male
  Weight: 89 kg

DRUGS (1)
  1. ABILIFY [Suspect]
     Active Substance: ARIPIPRAZOLE
     Indication: PSYCHOTIC DISORDER
     Dosage: 15 MG, UNK
     Route: 048
     Dates: start: 20190312

REACTIONS (6)
  - Headache [Recovered/Resolved]
  - Disturbance in attention [Recovered/Resolved]
  - Agitation [Recovered/Resolved]
  - Product use in unapproved indication [Unknown]
  - Weight increased [Recovered/Resolved]
  - Akathisia [Not Recovered/Not Resolved]

NARRATIVE: CASE EVENT DATE: 20190312
